FAERS Safety Report 9706602 (Version 2)
Quarter: 2013Q4

REPORT INFORMATION
  Report Type: Spontaneous
  Country: None (occurrence: IT)
  Receive Date: 20131125
  Receipt Date: 20131209
  Transmission Date: 20140711
  Serious: Yes (Life-Threatening)
  Sender: FDA-Public Use
  Company Number: IT-ACCORD-020384

PATIENT
  Age: 21 Year
  Sex: Male

DRUGS (3)
  1. ROLENIUM [Suspect]
     Indication: ASTHMA
     Route: 055
     Dates: start: 20131006, end: 20131107
  2. RUPAFIN [Suspect]
     Indication: ASTHMA
     Route: 048
     Dates: start: 20131006, end: 20131107
  3. MONTELUKAST [Suspect]
     Indication: ASTHMA
     Route: 048
     Dates: start: 20131006, end: 20131106

REACTIONS (2)
  - Drug ineffective [Recovered/Resolved]
  - Laryngospasm [Recovered/Resolved]
